FAERS Safety Report 5091902-4 (Version None)
Quarter: 2006Q3

REPORT INFORMATION
  Report Type: 
  Country: None (occurrence: None)
  Receive Date: 20060825
  Receipt Date: 20060814
  Transmission Date: 20061208
  Serious: Yes (Other)
  Sender: FDA-Public Use
  Company Number: 2006099469

PATIENT
  Sex: Female

DRUGS (18)
  1. DIFLUCAN [Suspect]
     Indication: FUNGAL INFECTION
     Dosage: 150 MG (150 MG, 1 IN 1 D), ORAL
     Route: 048
     Dates: start: 20060701, end: 20060701
  2. PANACOD (CODEINE PHOSPHATE, PARACETAMOL) [Concomitant]
  3. RIVATRIL (CLONAZEPAM) [Concomitant]
  4. TOPIMAX (TOPIRAMATE) [Concomitant]
  5. ALL OTHER THERAPEUTIC PRODUCTS (ALL OTHER THERAPEUTIC PRODUCTS) [Concomitant]
  6. LYRICA [Concomitant]
  7. DIUREX (AMILORIDE HYDROCHLORIDE, HYDROCHLOROTHIAZIDE) [Concomitant]
  8. HYDROCORTISONE [Concomitant]
  9. NEXIUM [Concomitant]
  10. PREDNISOLONE [Concomitant]
  11. OMNIC (TAMSULOSIN HYDROCHLORIDE) [Concomitant]
  12. APURIN (ALLOPURINOL) [Concomitant]
  13. SERETIDE (FLUTICASONE PROPIONATE, SALMETEROL XINAFOATE) [Concomitant]
  14. VENTOLIN [Concomitant]
  15. NORFLEX [Concomitant]
  16. NAPROMEX (NAPROXEN) [Concomitant]
  17. ABALGIN RETARD (DEXTROPROPOXYPHENE HYDROCHLORIDE) [Concomitant]
  18. CYMBALTA [Concomitant]

REACTIONS (5)
  - BLISTER [None]
  - DYSPNOEA [None]
  - GLOSSODYNIA [None]
  - TONGUE BLISTERING [None]
  - URTICARIA [None]
